FAERS Safety Report 13485320 (Version 1)
Quarter: 2017Q2

REPORT INFORMATION
  Report Type: Spontaneous
  Country: US (occurrence: US)
  Receive Date: 20170425
  Receipt Date: 20170425
  Transmission Date: 20170830
  Serious: Yes (Life-Threatening)
  Sender: FDA-Public Use
  Company Number: None

PATIENT
  Age: 60 Year
  Sex: Female
  Weight: 47.17 kg

DRUGS (26)
  1. ATIVAN [Concomitant]
     Active Substance: LORAZEPAM
  2. KAYEXALATE [Concomitant]
     Active Substance: SODIUM POLYSTYRENE SULFONATE
  3. ROBITUSSIN (GUAIFENESIN) [Concomitant]
     Active Substance: GUAIFENESIN
  4. PERCOCET [Concomitant]
     Active Substance: ACETAMINOPHEN\OXYCODONE HYDROCHLORIDE
  5. LASIX [Concomitant]
     Active Substance: FUROSEMIDE
  6. DULCOLAX NOS [Concomitant]
     Active Substance: BISACODYL OR DOCUSATE SODIUM
  7. PROTONIX [Concomitant]
     Active Substance: PANTOPRAZOLE SODIUM
  8. LOPRESSOR [Concomitant]
     Active Substance: METOPROLOL TARTRATE
  9. COLACE [Concomitant]
     Active Substance: DOCUSATE SODIUM
  10. DECADRON [Concomitant]
     Active Substance: DEXAMETHASONE
  11. DIOVAN [Concomitant]
     Active Substance: VALSARTAN
  12. SENOKOT [Concomitant]
     Active Substance: SENNOSIDES
  13. AIRBORNE [Concomitant]
     Active Substance: HERBALS\MINERALS\VITAMINS
  14. TYLENOL [Concomitant]
     Active Substance: ACETAMINOPHEN
  15. ANCEF [Concomitant]
     Active Substance: CEFAZOLIN SODIUM
  16. SODIUM CHLORIDE. [Concomitant]
     Active Substance: SODIUM CHLORIDE
  17. FENTANYL. [Concomitant]
     Active Substance: FENTANYL
  18. MARIONOL [Concomitant]
  19. MIRALAX [Concomitant]
     Active Substance: POLYETHYLENE GLYCOL 3350
  20. CARBOPLATIN. [Suspect]
     Active Substance: CARBOPLATIN
     Indication: BREAST CANCER
     Dosage: 290.4 MG EVERY 21 DAYS
     Route: 042
     Dates: start: 20170126, end: 20170330
  21. ZOFRAN [Concomitant]
     Active Substance: ONDANSETRON HYDROCHLORIDE
  22. BICARBONATE [Concomitant]
     Active Substance: BICARBONATE ION
  23. ATROVENT [Concomitant]
     Active Substance: IPRATROPIUM BROMIDE
  24. ALBUTEROL. [Concomitant]
     Active Substance: ALBUTEROL
  25. LOVENOX [Concomitant]
     Active Substance: ENOXAPARIN SODIUM
  26. MORPHINE [Concomitant]
     Active Substance: MORPHINE

REACTIONS (5)
  - Platelet count decreased [None]
  - Feeding disorder [None]
  - Adult failure to thrive [None]
  - General physical health deterioration [None]
  - Pericardial effusion [None]

NARRATIVE: CASE EVENT DATE: 20170330
